FAERS Safety Report 5913117-7 (Version None)
Quarter: 2008Q4

REPORT INFORMATION
  Report Type: 
  Country: None (occurrence: None)
  Receive Date: 20081008
  Receipt Date: 20081008
  Transmission Date: 20090506
  Serious: Yes (Life-Threatening, Hospitalization)
  Sender: FDA-Public Use
  Company Number: None

PATIENT
  Sex: Female
  Weight: 99.7913 kg

DRUGS (1)
  1. CLINDAMYCIN HCL [Suspect]
     Indication: TOOTHACHE
     Dosage: 150 MG 1 QID ORAL
     Route: 048
     Dates: start: 20080807, end: 20080811

REACTIONS (9)
  - BLOOD TEST ABNORMAL [None]
  - FLUID RETENTION [None]
  - HYPOTENSION [None]
  - PAIN [None]
  - RASH ERYTHEMATOUS [None]
  - RASH GENERALISED [None]
  - RASH PRURITIC [None]
  - SKIN EXFOLIATION [None]
  - SWELLING [None]
